FAERS Safety Report 5723476-6 (Version None)
Quarter: 2008Q2

REPORT INFORMATION
  Report Type: 
  Country: None (occurrence: None)
  Receive Date: 20080425
  Receipt Date: 20071010
  Transmission Date: 20081010
  Serious: Yes (Other)
  Sender: FDA-Public Use
  Company Number: 2007332786

PATIENT
  Age: 18 Month
  Sex: Female

DRUGS (1)
  1. BENADRYL [Suspect]
     Dosage: ORAL
     Route: 048
     Dates: start: 20071010, end: 20071010

REACTIONS (2)
  - ACCIDENTAL EXPOSURE [None]
  - SOMNOLENCE [None]
